FAERS Safety Report 14818169 (Version 1)
Quarter: 2018Q2

REPORT INFORMATION
  Report Type: Spontaneous
  Country: US (occurrence: US)
  Receive Date: 20180427
  Receipt Date: 20180427
  Transmission Date: 20180711
  Serious: No
  Sender: FDA-Public Use
  Company Number: US-009507513-1804USA006373

PATIENT
  Sex: Male

DRUGS (2)
  1. TAMSULOSIN HYDROCHLORIDE. [Suspect]
     Active Substance: TAMSULOSIN HYDROCHLORIDE
  2. FINASTERIDE. [Suspect]
     Active Substance: FINASTERIDE

REACTIONS (4)
  - Headache [Unknown]
  - Sleep apnoea syndrome [Unknown]
  - Dizziness [Unknown]
  - Depression [Unknown]
